FAERS Safety Report 8351256-4 (Version None)
Quarter: 2012Q2

REPORT INFORMATION
  Report Type: 
  Country: None (occurrence: None)
  Receive Date: 20120510
  Receipt Date: 20120503
  Transmission Date: 20120825
  Serious: Yes (Hospitalization, Other)
  Sender: FDA-Public Use
  Company Number: CH-ROXANE LABORATORIES, INC.-2012-RO-01175RO

PATIENT
  Age: 85 Year
  Sex: Female

DRUGS (1)
  1. METHOTREXATE [Suspect]
     Indication: RHEUMATOID ARTHRITIS

REACTIONS (8)
  - VARICES OESOPHAGEAL [None]
  - PULMONARY FIBROSIS [None]
  - PORTAL HYPERTENSION [None]
  - HEPATIC CIRRHOSIS [None]
  - ASCITES [None]
  - PANCYTOPENIA [None]
  - SPLENOMEGALY [None]
  - HIP FRACTURE [None]
